FAERS Safety Report 20825731 (Version 1)
Quarter: 2022Q2

REPORT INFORMATION
  Report Type: Spontaneous
  Country: US (occurrence: None)
  Receive Date: 20220512
  Receipt Date: 20220512
  Transmission Date: 20220721
  Serious: Yes (Disabling)
  Sender: FDA-Public Use
  Company Number: None

PATIENT
  Age: 65 Year
  Sex: Female
  Weight: 96.75 kg

DRUGS (1)
  1. SULFAMETHOXAZOLE\TRIMETHOPRIM [Suspect]
     Active Substance: SULFAMETHOXAZOLE\TRIMETHOPRIM
     Indication: Breast cellulitis
     Dosage: OTHER QUANTITY : 1 TABLET(S);?FREQUENCY : TWICE A DAY;?
     Route: 048
     Dates: start: 20220311, end: 20220415

REACTIONS (7)
  - Musculoskeletal stiffness [None]
  - Diarrhoea [None]
  - Neck pain [None]
  - Pain in jaw [None]
  - Drug hypersensitivity [None]
  - Loss of personal independence in daily activities [None]
  - Mobility decreased [None]

NARRATIVE: CASE EVENT DATE: 20220313
